FAERS Safety Report 25305360 (Version 1)
Quarter: 2025Q2

REPORT INFORMATION
  Report Type: Report from Study
  Country: EG (occurrence: EG)
  Receive Date: 20250513
  Receipt Date: 20250513
  Transmission Date: 20250717
  Serious: Yes (Other)
  Sender: NOVARTIS
  Company Number: EG-002147023-NVSC2025EG076487

PATIENT
  Age: 38 Year
  Sex: Male

DRUGS (12)
  1. MAYZENT [Suspect]
     Active Substance: SIPONIMOD
     Indication: Multiple sclerosis
     Dosage: 2 MG, QD, 1 TABLET ONCE DAILY
     Route: 048
     Dates: start: 20240819
  2. MAYZENT [Suspect]
     Active Substance: SIPONIMOD
     Dosage: 2 MG, QD, ONE TABLET ONCE DAILY
     Route: 048
     Dates: start: 20241208, end: 20250208
  3. MAYZENT [Suspect]
     Active Substance: SIPONIMOD
     Dosage: 2 MG, QD, ONE TABLET PER DAY
     Route: 048
     Dates: start: 202412
  4. GILENYA [Suspect]
     Active Substance: FINGOLIMOD HYDROCHLORIDE
     Indication: Multiple sclerosis
     Dosage: 0.5 MG, QD, ONE CAPSULE ONCE DAILY
     Route: 048
     Dates: start: 2016
  5. GILENYA [Suspect]
     Active Substance: FINGOLIMOD HYDROCHLORIDE
     Dosage: 0.5 MG, QD
     Route: 048
     Dates: start: 2019
  6. GILENYA [Suspect]
     Active Substance: FINGOLIMOD HYDROCHLORIDE
     Route: 048
     Dates: start: 201902
  7. TORSEMIDE [Concomitant]
     Active Substance: TORSEMIDE
     Indication: Diuretic therapy
     Dosage: 10 DAYS AGO, 5 MG, QD, TABLET, ? TABLET ONCE DAILY
     Route: 048
  8. CEREBROLYSIN [Concomitant]
     Active Substance: CEREBROLYSIN
     Indication: Blood disorder
     Dosage: SOLUTION FOR INFUSION, QD
     Route: 042
     Dates: start: 201802
  9. CEREBROLYSIN [Concomitant]
     Active Substance: CEREBROLYSIN
     Dosage: SOLUTION FOR INFUSION, QD
     Route: 042
     Dates: start: 20230927
  10. SOLU-MEDROL [Concomitant]
     Active Substance: METHYLPREDNISOLONE SODIUM SUCCINATE
     Indication: Blood disorder
     Dosage: UNK, QD
     Route: 042
     Dates: start: 201802
  11. RINGERS SOLUTION [Concomitant]
     Active Substance: CALCIUM CHLORIDE\POTASSIUM CHLORIDE\SODIUM CHLORIDE
     Indication: Blood disorder
     Dosage: SOLUTION FOR INFUSION, QD
     Route: 042
     Dates: start: 201802
  12. RINGERS SOLUTION [Concomitant]
     Active Substance: CALCIUM CHLORIDE\POTASSIUM CHLORIDE\SODIUM CHLORIDE
     Dosage: SOLUTION FOR INFUSION, QD
     Route: 042
     Dates: start: 20230927

REACTIONS (1)
  - Anaemia [Recovered/Resolved]

NARRATIVE: CASE EVENT DATE: 20190201
